FAERS Safety Report 5215449-7 (Version None)
Quarter: 2007Q1

REPORT INFORMATION
  Report Type: 
  Country: None (occurrence: None)
  Receive Date: 20070119
  Receipt Date: 20070119
  Transmission Date: 20070707
  Serious: Yes (Other)
  Sender: FDA-Public Use
  Company Number: None

PATIENT
  Sex: Female
  Weight: 70.3075 kg

DRUGS (2)
  1. ORTHO TRI-CYCLEN [Suspect]
     Indication: CONTRACEPTION
     Dosage: 1 PILL PER DAY PO
     Route: 048
     Dates: start: 20060901, end: 20060930
  2. ORTHO EVRA [Suspect]
     Indication: CONTRACEPTION
     Dosage: 1 PATCH PER WEEK TRANSDERMA
     Route: 062
     Dates: start: 20050602, end: 20050901

REACTIONS (2)
  - ALOPECIA [None]
  - HYPOTRICHOSIS [None]
